FAERS Safety Report 13695176 (Version 1)
Quarter: 2017Q2

REPORT INFORMATION
  Report Type: Other
  Country: IE (occurrence: IE)
  Receive Date: 20170627
  Receipt Date: 20170627
  Transmission Date: 20170830
  Serious: Yes (Other)
  Sender: FDA-Public Use
  Company Number: IE-GE HEALTHCARE LIFE SCIENCES-2017CSU001798

PATIENT

DRUGS (1)
  1. OMNIPAQUE [Suspect]
     Active Substance: IOHEXOL
     Indication: PRODUCT USED FOR UNKNOWN INDICATION
     Dosage: 70 ML, SINGLE
     Route: 042
     Dates: start: 20170522, end: 20170522

REACTIONS (5)
  - Urticaria [Recovered/Resolved]
  - Lacrimation increased [Recovered/Resolved]
  - Malaise [Recovered/Resolved]
  - Pharyngeal oedema [Recovered/Resolved]
  - Sneezing [Recovered/Resolved]

NARRATIVE: CASE EVENT DATE: 20170522
